FAERS Safety Report 14327944 (Version 3)
Quarter: 2018Q1

REPORT INFORMATION
  Report Type: Spontaneous
  Country: US (occurrence: US)
  Receive Date: 20171227
  Receipt Date: 20180312
  Transmission Date: 20180509
  Serious: Yes (Other)
  Sender: FDA-Public Use
  Company Number: US-ASTELLAS-2017US041300

PATIENT
  Sex: Male

DRUGS (1)
  1. XTANDI [Suspect]
     Active Substance: ENZALUTAMIDE
     Indication: PROSTATE CANCER
     Route: 048
     Dates: start: 20170922

REACTIONS (7)
  - Fatigue [Unknown]
  - Headache [Unknown]
  - Pruritus [Unknown]
  - Arthralgia [Recovering/Resolving]
  - Weight decreased [Unknown]
  - Rash generalised [Unknown]
  - Myalgia [Recovering/Resolving]
